FAERS Safety Report 7426223-5 (Version None)
Quarter: 2011Q2

REPORT INFORMATION
  Report Type: 
  Country: None (occurrence: None)
  Receive Date: 20110420
  Receipt Date: 20110418
  Transmission Date: 20111010
  Serious: Yes (Congenital Anomaly)
  Sender: FDA-Public Use
  Company Number: A0886930A

PATIENT
  Sex: Male

DRUGS (3)
  1. RETROVIR [Suspect]
     Indication: ANTIVIRAL TREATMENT
     Dosage: 600MGD PER DAY
     Route: 064
     Dates: start: 20100430, end: 20100706
  2. EPIVIR [Suspect]
     Indication: ANTIVIRAL TREATMENT
     Dosage: 300MGD PER DAY
     Route: 064
     Dates: start: 20100430, end: 20100706
  3. KALETRA [Suspect]
     Indication: ANTIVIRAL TREATMENT
     Dosage: 5TAB PER DAY
     Route: 064
     Dates: start: 20100430, end: 20100706

REACTIONS (2)
  - CONGENITAL AORTIC ANOMALY [None]
  - DRUG EXPOSURE DURING PREGNANCY [None]
